FAERS Safety Report 13701735 (Version 3)
Quarter: 2017Q3

REPORT INFORMATION
  Report Type: Spontaneous
  Country: GB (occurrence: GB)
  Receive Date: 20170629
  Receipt Date: 20170922
  Transmission Date: 20171127
  Serious: Yes (Death, Other)
  Sender: FDA-Public Use
  Company Number: GB-INCYTE CORPORATION-2017IN005067

PATIENT

DRUGS (1)
  1. JAKAVI [Suspect]
     Active Substance: RUXOLITINIB
     Indication: MYELOFIBROSIS
     Dosage: UNK
     Route: 065

REACTIONS (2)
  - Acute myeloid leukaemia [Fatal]
  - Drug ineffective [Unknown]
